FAERS Safety Report 9110329 (Version 2)
Quarter: 2013Q2

REPORT INFORMATION
  Report Type: Spontaneous
  Country: US (occurrence: US)
  Receive Date: 20130222
  Receipt Date: 20130415
  Transmission Date: 20140414
  Serious: Yes (Other)
  Sender: FDA-Public Use
  Company Number: US-BAYER-2013-004561

PATIENT
  Age: 37 Year
  Sex: Female
  Weight: 57.14 kg

DRUGS (2)
  1. MIRENA [Suspect]
     Indication: CONTRACEPTION
     Dosage: 20 MCG/24HR, CONT
     Route: 015
     Dates: start: 20121211, end: 20121221
  2. ADVAIR [Concomitant]

REACTIONS (5)
  - Post procedural haemorrhage [Recovered/Resolved]
  - Diarrhoea [Recovered/Resolved]
  - Pelvic pain [Recovered/Resolved]
  - Feeling hot [Recovered/Resolved]
  - Malaise [None]
